FAERS Safety Report 8348752-2 (Version None)
Quarter: 2012Q2

REPORT INFORMATION
  Report Type: 
  Country: None (occurrence: None)
  Receive Date: 20120510
  Receipt Date: 20120508
  Transmission Date: 20120825
  Serious: No
  Sender: FDA-Public Use
  Company Number: US-PFIZER INC-2012056688

PATIENT
  Sex: Male
  Weight: 50.794 kg

DRUGS (11)
  1. TRAZODONE HCL [Suspect]
     Indication: SLEEP DISORDER
     Dosage: 150MG, DAILY AT NIGHT
     Route: 048
  2. CHANTIX [Suspect]
     Indication: SMOKING CESSATION THERAPY
     Dosage: 0.5 MG, DAILY
     Route: 048
     Dates: start: 20120201
  3. SERTRALINE [Concomitant]
     Dosage: 50 MG, DAILY IN THE MORNING
  4. PROAIR HFA [Concomitant]
     Dosage: 108 UG, 2 PUFFS, AS NEEDED
  5. WARFARIN [Concomitant]
     Indication: ANTICOAGULANT THERAPY
     Dosage: 8 MG THREE TIMES IN A WEEK AND 9 MG FOUR TIMES IN A WEEK
     Route: 048
  6. VIRAMUNE [Concomitant]
     Dosage: 200 MG, 2X/DAY
     Route: 048
  7. ANDROGEL [Concomitant]
     Dosage: 25 MG, DAILY
     Route: 061
  8. CYCLOBENZAPRINE [Concomitant]
     Dosage: 10 MG, AS NEEDED
     Route: 048
  9. COMBIVIR [Concomitant]
     Dosage: 150/300 MG, 2X/DAY
     Route: 048
  10. ATIVAN [Concomitant]
     Dosage: EITHER TWO OR THREE TABLETS (1MG TABLET), DAILY
     Route: 048
  11. ADVAIR DISKUS 100/50 [Concomitant]
     Dosage: 500/50 MCG, 2X/DAY

REACTIONS (3)
  - ABNORMAL DREAMS [None]
  - INSOMNIA [None]
  - DRUG INEFFECTIVE [None]
